FAERS Safety Report 23117055 (Version 1)
Quarter: 2023Q4

REPORT INFORMATION
  Report Type: Spontaneous
  Country: PL (occurrence: PL)
  Receive Date: 20231027
  Receipt Date: 20231027
  Transmission Date: 20240110
  Serious: Yes (Other)
  Sender: FDA-Public Use
  Company Number: None

PATIENT
  Age: 28 Year
  Sex: Female

DRUGS (5)
  1. CYCLOPHOSPHAMIDE [Suspect]
     Active Substance: CYCLOPHOSPHAMIDE
     Indication: Systemic scleroderma
     Dosage: 1000 MG ONCE A MONTH, CONTINUED BY 6 MONTHS
     Route: 042
  2. METHOTREXATE [Suspect]
     Active Substance: METHOTREXATE
     Indication: Systemic scleroderma
     Dosage: 25 MG, QW (25 MG PER WEEK)
     Route: 065
  3. HYDROXYCHLOROQUINE [Concomitant]
     Active Substance: HYDROXYCHLOROQUINE
     Indication: Systemic scleroderma
     Dosage: ROUTE OF ADMIN (FREE TEXT): UNKNOWN ROUTE
     Route: 065
  4. MYCOPHENOLATE MOFETIL [Concomitant]
     Active Substance: MYCOPHENOLATE MOFETIL
     Indication: Systemic scleroderma
     Dosage: MAINTENANCE THERAPY AT A DOSE OF 2 G PER DAY ROUTE OF ADMIN (FREE TEXT): UNKNOWN ROUTE
     Route: 065
  5. TOCILIZUMAB [Concomitant]
     Active Substance: TOCILIZUMAB
     Indication: Systemic scleroderma
     Dosage: 162 MG PER WEEK WAS INITIATED AS RESCUE THERAPY
     Route: 058

REACTIONS (4)
  - Systemic scleroderma [Unknown]
  - Disease progression [Recovering/Resolving]
  - Product use in unapproved indication [Unknown]
  - Therapeutic product effect incomplete [Unknown]
